FAERS Safety Report 9504193 (Version 1)
Quarter: 2013Q3

REPORT INFORMATION
  Report Type: Spontaneous
  Country: CA (occurrence: CA)
  Receive Date: 20130906
  Receipt Date: 20130906
  Transmission Date: 20140515
  Serious: Yes (Death, Hospitalization)
  Sender: FDA-Public Use
  Company Number: CA-GLAXOSMITHKLINE-A1023617A

PATIENT
  Sex: Female
  Weight: 75.9 kg

DRUGS (12)
  1. FLOLAN [Suspect]
     Indication: PULMONARY HYPERTENSION
     Dosage: 1.5MG SEE DOSAGE TEXT
     Route: 050
     Dates: start: 20100312
  2. FLOLAN DILUENT [Suspect]
     Indication: PULMONARY HYPERTENSION
     Route: 065
     Dates: start: 20100312
  3. POTASSIUM [Concomitant]
  4. WARFARIN [Concomitant]
  5. VITAMIN D [Concomitant]
  6. LASIX [Concomitant]
  7. SILDENAFIL [Concomitant]
  8. BOSENTAN [Concomitant]
  9. ZOPICLONE [Concomitant]
  10. FLUVOXAMINE [Concomitant]
  11. OXYGEN [Concomitant]
  12. ALPRAZOLAM [Concomitant]

REACTIONS (3)
  - Dyspnoea [Unknown]
  - Local swelling [Unknown]
  - Death [Fatal]
